FAERS Safety Report 12685108 (Version 1)
Quarter: 2016Q3

REPORT INFORMATION
  Report Type: Spontaneous
  Country: GB (occurrence: GB)
  Receive Date: 20160825
  Receipt Date: 20160825
  Transmission Date: 20161109
  Serious: Yes (Hospitalization)
  Sender: FDA-Public Use
  Company Number: GB-TEVA-685577ACC

PATIENT
  Age: 74 Year
  Sex: Male

DRUGS (11)
  1. CELECOXIB. [Suspect]
     Active Substance: CELECOXIB
     Route: 048
  2. NOVORAPID [Concomitant]
     Active Substance: INSULIN ASPART
  3. QUININE [Concomitant]
     Active Substance: QUININE
  4. OMEPRAZOLE. [Concomitant]
     Active Substance: OMEPRAZOLE
  5. TAMSULOSIN [Concomitant]
     Active Substance: TAMSULOSIN
  6. BEZAFIBRATE [Concomitant]
     Active Substance: BEZAFIBRATE
  7. RAMIPRIL. [Concomitant]
     Active Substance: RAMIPRIL
  8. GLIPIZIDE. [Concomitant]
     Active Substance: GLIPIZIDE
  9. LANTUS [Concomitant]
     Active Substance: INSULIN GLARGINE
  10. SOLIFENACIN [Concomitant]
     Active Substance: SOLIFENACIN
  11. TRAMADOL. [Concomitant]
     Active Substance: TRAMADOL

REACTIONS (4)
  - Cardiac failure acute [Not Recovered/Not Resolved]
  - Oedema peripheral [Unknown]
  - Pleural effusion [Unknown]
  - Dyspnoea [Unknown]
